FAERS Safety Report 23593132 (Version 1)
Quarter: 2024Q1

REPORT INFORMATION
  Report Type: Report from Study
  Country: CO (occurrence: CO)
  Receive Date: 20240304
  Receipt Date: 20240304
  Transmission Date: 20240410
  Serious: Yes (Death, Hospitalization)
  Sender: FDA-Public Use
  Company Number: CO-ELI_LILLY_AND_COMPANY-CO202403000269

PATIENT
  Age: 32 Year
  Sex: Female

DRUGS (1)
  1. CYRAMZA [Suspect]
     Active Substance: RAMUCIRUMAB
     Indication: Gastric cancer
     Dosage: UNK UNK, 2/M (EVERY FIFTEEN DAYS)
     Route: 042
     Dates: start: 20230418, end: 20230920

REACTIONS (3)
  - Malnutrition [Fatal]
  - Peritonitis [Unknown]
  - Blood potassium decreased [Unknown]
